FAERS Safety Report 11607889 (Version 1)
Quarter: 2015Q4

REPORT INFORMATION
  Report Type: Spontaneous
  Country: DE (occurrence: DE)
  Receive Date: 20151007
  Receipt Date: 20151007
  Transmission Date: 20160304
  Serious: Yes (Other)
  Sender: FDA-Public Use
  Company Number: DE-TEVA-597738GER

PATIENT
  Age: 30 Year
  Sex: Male
  Weight: 59 kg

DRUGS (4)
  1. LEUCOVORIN. [Suspect]
     Active Substance: LEUCOVORIN
     Dosage: GIVEN FROM 10.20AM TO 12.30PM
     Route: 042
  2. 5-FU [Concomitant]
     Active Substance: FLUOROURACIL
     Dosage: GIVEN FROM 12:45PM TO 13:25PM
     Route: 042
  3. 5-FU [Concomitant]
     Active Substance: FLUOROURACIL
     Dosage: GIVEN AT 3 PM
     Route: 042
  4. OXALIPLATIN. [Suspect]
     Active Substance: OXALIPLATIN
     Dosage: GIVEN FROM 8:00AM TO 10:05AM
     Route: 042

REACTIONS (3)
  - Angina pectoris [Not Recovered/Not Resolved]
  - Vomiting [Not Recovered/Not Resolved]
  - Nausea [Not Recovered/Not Resolved]

NARRATIVE: CASE EVENT DATE: 20150831
